FAERS Safety Report 6285928-2 (Version None)
Quarter: 2009Q3

REPORT INFORMATION
  Report Type: 
  Country: None (occurrence: None)
  Receive Date: 20090728
  Receipt Date: 20090407
  Transmission Date: 20100115
  Serious: No
  Sender: FDA-Public Use
  Company Number: A0772555A

PATIENT
  Sex: Female

DRUGS (1)
  1. DYAZIDE [Suspect]
     Indication: DRUG USE FOR UNKNOWN INDICATION
     Dosage: 1CAP UNKNOWN
     Route: 048

REACTIONS (4)
  - ASTHENIA [None]
  - BLOOD PRESSURE DECREASED [None]
  - DIZZINESS [None]
  - MALAISE [None]
